FAERS Safety Report 13470943 (Version 1)
Quarter: 2017Q2

REPORT INFORMATION
  Report Type: Spontaneous
  Country: US (occurrence: US)
  Receive Date: 20170424
  Receipt Date: 20170424
  Transmission Date: 20170830
  Serious: Yes (Other)
  Sender: FDA-Public Use
  Company Number: US-TEVA-711915USA

PATIENT
  Age: 65 Year
  Sex: Female
  Weight: 50.39 kg

DRUGS (1)
  1. LOSARTAN. [Suspect]
     Active Substance: LOSARTAN
     Indication: HYPERTENSION
     Dosage: 25 MILLIGRAM DAILY;
     Dates: start: 201609

REACTIONS (10)
  - Hypotension [Unknown]
  - Laryngitis [Unknown]
  - Heart rate irregular [Unknown]
  - Drug prescribing error [Unknown]
  - Dysgeusia [Unknown]
  - Anxiety [Unknown]
  - Feeling abnormal [Unknown]
  - Hypertension [Unknown]
  - Heart rate decreased [Unknown]
  - Nausea [Unknown]

NARRATIVE: CASE EVENT DATE: 2016
